FAERS Safety Report 11243335 (Version 1)
Quarter: 2015Q3

REPORT INFORMATION
  Report Type: Spontaneous
  Country: PT (occurrence: PT)
  Receive Date: 20150707
  Receipt Date: 20150707
  Transmission Date: 20151125
  Serious: Yes (Hospitalization)
  Sender: FDA-Public Use
  Company Number: CHNY2015PT000448

PATIENT
  Age: 28 Year
  Sex: Male

DRUGS (4)
  1. PARACETAMOL [Suspect]
     Active Substance: ACETAMINOPHEN
     Indication: BACK PAIN
  2. MEBOCAINE FORTE [Suspect]
     Active Substance: BENOXINATE HYDROCHLORIDE\CETYLPYRIDINIUM CHLORIDE\TYROTHRICIN
     Indication: PHARYNGITIS
     Dosage: UNK
     Route: 048
     Dates: start: 200903, end: 200903
  3. LEXOTAN [Suspect]
     Active Substance: BROMAZEPAM
     Indication: BACK PAIN
     Dosage: UNK
     Route: 048
     Dates: start: 200903, end: 200903
  4. PARACETAMOL [Suspect]
     Active Substance: ACETAMINOPHEN
     Indication: PHARYNGITIS
     Dosage: UNK
     Route: 048
     Dates: start: 200903, end: 200903

REACTIONS (4)
  - Toxic skin eruption [Recovered/Resolved]
  - Pruritus [Recovered/Resolved]
  - Blister [Recovered/Resolved]
  - Rash maculo-papular [Recovered/Resolved]

NARRATIVE: CASE EVENT DATE: 20090322
